FAERS Safety Report 10432302 (Version 7)
Quarter: 2015Q2

REPORT INFORMATION
  Report Type: Report from Study
  Country: MX (occurrence: MX)
  Receive Date: 20140905
  Receipt Date: 20150504
  Transmission Date: 20150821
  Serious: Yes (Life-Threatening, Hospitalization)
  Sender: FDA-Public Use
  Company Number: MX-BAYER-2014-131094

PATIENT
  Age: 75 Year
  Sex: Male
  Weight: 85 kg

DRUGS (16)
  1. FUROSEMIDE. [Concomitant]
     Active Substance: FUROSEMIDE
     Indication: PULMONARY HYPERTENSION
     Dosage: 20 MG, QD
     Route: 048
     Dates: start: 201307
  2. LEVOFLOXACIN. [Concomitant]
     Active Substance: LEVOFLOXACIN
     Indication: GASTROINTESTINAL INFECTION
     Dosage: 750 MG, QD
     Route: 048
     Dates: start: 20140828
  3. CRESTOR [Concomitant]
     Active Substance: ROSUVASTATIN CALCIUM
     Indication: ARTERIOSCLEROSIS
     Dosage: 5 MG, QD
     Route: 048
     Dates: start: 2012
  4. HEMOBION [Concomitant]
     Indication: ANAEMIA
     Dosage: 6200 MG, QD
     Route: 048
     Dates: start: 20140716, end: 20140818
  5. PREGABALIN. [Concomitant]
     Active Substance: PREGABALIN
     Indication: POLYNEUROPATHY
     Dosage: 150 MG, QD
     Route: 048
     Dates: start: 2011
  6. SENNOSIDE [Concomitant]
     Active Substance: SENNOSIDES
     Indication: INTESTINAL OBSTRUCTION
     Dosage: 150 MG, QD
     Route: 048
     Dates: start: 201409
  7. RIOCIGUAT (GUANYLATE CYCLASE STIMULATOR) [Suspect]
     Active Substance: RIOCIGUAT
     Indication: PULMONARY HYPERTENSION
     Dosage: 2.5 MG, TID
     Route: 048
     Dates: start: 20140813, end: 20140828
  8. XARELTO [Concomitant]
     Active Substance: RIVAROXABAN
     Indication: ANTICOAGULANT THERAPY
     Dosage: 10 MG, QD
     Route: 048
     Dates: start: 201401
  9. SENSIBIT-D [LORATADINE,PSEUDOEPHEDRINE] [Concomitant]
     Indication: GASTROINTESTINAL INFECTION
     Dosage: 3 DF, QD
     Route: 048
     Dates: start: 20140828
  10. RIOCIGUAT (GUANYLATE CYCLASE STIMULATOR) [Suspect]
     Active Substance: RIOCIGUAT
     Indication: PULMONARY HYPERTENSION
     Dosage: 1 MG, TID
     Dates: start: 20140701, end: 20140715
  11. GLUCOSAMINE W/CHONDROITIN SULFATE [Concomitant]
     Active Substance: CHONDROITIN SULFATE (BOVINE)\GLUCOSAMINE SULFATE
     Indication: OSTEOARTHRITIS
     Dosage: 1 DF, QD
     Route: 048
     Dates: start: 2011
  12. RIOCIGUAT (GUANYLATE CYCLASE STIMULATOR) [Suspect]
     Active Substance: RIOCIGUAT
     Indication: PULMONARY HYPERTENSION
     Dosage: 2.0 MG, TID
     Route: 048
     Dates: start: 20140729, end: 20140812
  13. PULMOCARE [Concomitant]
     Indication: NUTRITIONAL SUPPLEMENTATION
     Dosage: 1 S, QD
     Route: 048
     Dates: start: 20140725
  14. RIOCIGUAT (GUANYLATE CYCLASE STIMULATOR) [Suspect]
     Active Substance: RIOCIGUAT
     Indication: PULMONARY HYPERTENSION
     Dosage: 1.5 MG, TID
     Route: 048
     Dates: start: 20140716, end: 20140729
  15. SPIRONOLACTONE. [Concomitant]
     Active Substance: SPIRONOLACTONE
     Indication: PULMONARY HYPERTENSION
     Dosage: 25 MG, QD
     Route: 048
     Dates: start: 201307
  16. TESALON [Concomitant]
     Indication: COUGH
     Dosage: 700 MG, QD
     Route: 048
     Dates: start: 20140828

REACTIONS (1)
  - Intestinal obstruction [Recovered/Resolved]

NARRATIVE: CASE EVENT DATE: 20140829
